FAERS Safety Report 16778224 (Version 1)
Quarter: 2019Q3

REPORT INFORMATION
  Report Type: Spontaneous
  Country: TN (occurrence: TN)
  Receive Date: 20190905
  Receipt Date: 20190905
  Transmission Date: 20191005
  Serious: Yes (Death, Other)
  Sender: FDA-Public Use
  Company Number: TN-BRISTOL-MYERS SQUIBB COMPANY-BMS-2019-087025

PATIENT
  Age: 35 Year
  Sex: Female

DRUGS (1)
  1. DASATINIB. [Suspect]
     Active Substance: DASATINIB
     Indication: CHRONIC MYELOID LEUKAEMIA
     Dosage: 140 MILLIGRAM, QD
     Route: 065

REACTIONS (1)
  - Haemorrhagic disorder [Fatal]
